FAERS Safety Report 7037318-2 (Version None)
Quarter: 2010Q4

REPORT INFORMATION
  Report Type: 
  Country: None (occurrence: None)
  Receive Date: 20101011
  Receipt Date: 20100930
  Transmission Date: 20110411
  Serious: Yes (Death, Other)
  Sender: FDA-Public Use
  Company Number: CA-BAXTER-2010BH024853

PATIENT
  Age: 79 Year
  Sex: Female

DRUGS (2)
  1. BUMINATE 25% [Suspect]
     Indication: PRODUCT USED FOR UNKNOWN INDICATION
     Route: 065
     Dates: start: 20090324, end: 20090324
  2. BLOOD AND RELATED PRODUCTS [Concomitant]
     Dates: start: 20100324

REACTIONS (7)
  - AMMONIA INCREASED [None]
  - BLOOD CREATINE INCREASED [None]
  - CONFUSIONAL STATE [None]
  - DYSPNOEA [None]
  - HEART RATE INCREASED [None]
  - HEPATORENAL SYNDROME [None]
  - HYPOTENSION [None]
